FAERS Safety Report 13929231 (Version 1)
Quarter: 2017Q3

REPORT INFORMATION
  Report Type: Spontaneous
  Country: US (occurrence: US)
  Receive Date: 20170901
  Receipt Date: 20170901
  Transmission Date: 20171127
  Serious: No
  Sender: FDA-Public Use
  Company Number: None

PATIENT
  Age: 33 Year
  Sex: Female
  Weight: 91 kg

DRUGS (1)
  1. DOTAREM [Suspect]
     Active Substance: GADOTERATE MEGLUMINE
     Route: 040
     Dates: start: 20170811, end: 20170811

REACTIONS (3)
  - Vomiting [None]
  - Cough [None]
  - Nausea [None]

NARRATIVE: CASE EVENT DATE: 20170811
